FAERS Safety Report 12364968 (Version 2)
Quarter: 2016Q2

REPORT INFORMATION
  Report Type: Spontaneous
  Country: PT (occurrence: PT)
  Receive Date: 20160512
  Receipt Date: 20160617
  Transmission Date: 20160815
  Serious: Yes (Disabling, Other)
  Sender: FDA-Public Use
  Company Number: PT-BAUSCH-BL-2016-011143

PATIENT
  Age: 67 Year
  Sex: Female
  Weight: 54 kg

DRUGS (1)
  1. YELLOX 0.9 MG/ML EYE DROPS, SOLUTION [Suspect]
     Active Substance: BROMFENAC SODIUM
     Indication: EYE INFLAMMATION
     Route: 047
     Dates: start: 20160427, end: 20160429

REACTIONS (2)
  - Visual impairment [Recovering/Resolving]
  - Visual field defect [Recovering/Resolving]

NARRATIVE: CASE EVENT DATE: 20160428
